FAERS Safety Report 7726165-1 (Version None)
Quarter: 2011Q3

REPORT INFORMATION
  Report Type: 
  Country: None (occurrence: None)
  Receive Date: 20110902
  Receipt Date: 20110819
  Transmission Date: 20111222
  Serious: Yes (Other)
  Sender: FDA-Public Use
  Company Number: US-JNJFOC-20110810153

PATIENT
  Sex: Female
  Weight: 75 kg

DRUGS (6)
  1. LAMICTAL [Concomitant]
     Indication: BIPOLAR DISORDER
     Route: 065
  2. CHANTIX [Suspect]
     Indication: SMOKING CESSATION THERAPY
     Route: 048
     Dates: start: 20110601, end: 20110101
  3. SEROQUEL [Concomitant]
     Indication: BIPOLAR DISORDER
     Route: 065
  4. CLARITIN-D 24 HOUR [Concomitant]
     Indication: HYPERSENSITIVITY
     Dosage: DAILY
     Route: 065
  5. VALIUM [Concomitant]
     Indication: DIZZINESS
     Route: 065
  6. NICOTROL [Suspect]
     Indication: SMOKING CESSATION THERAPY
     Route: 065
     Dates: start: 20110816, end: 20110817

REACTIONS (6)
  - IRRITABILITY [None]
  - HOMICIDAL IDEATION [None]
  - VIOLENCE-RELATED SYMPTOM [None]
  - THROAT IRRITATION [None]
  - ANGER [None]
  - CHOKING SENSATION [None]
